FAERS Safety Report 10403647 (Version 6)
Quarter: 2015Q4

REPORT INFORMATION
  Report Type: Spontaneous
  Country: US (occurrence: US)
  Receive Date: 20140822
  Receipt Date: 20151012
  Transmission Date: 20160304
  Serious: Yes (Life-Threatening, Other)
  Sender: FDA-Public Use
  Company Number: US-ELI_LILLY_AND_COMPANY-US201408005686

PATIENT
  Age: 28 Year
  Sex: Female

DRUGS (9)
  1. TRAZODONE [Concomitant]
     Active Substance: TRAZODONE HYDROCHLORIDE
     Dosage: 1 DF, UNKNOWN
     Route: 065
  2. CYMBALTA [Suspect]
     Active Substance: DULOXETINE HYDROCHLORIDE
     Indication: DEPRESSION
     Dosage: 60 MG, UNK
     Route: 065
     Dates: start: 20060626
  3. CYMBALTA [Suspect]
     Active Substance: DULOXETINE HYDROCHLORIDE
     Dosage: 30 MG, QD
     Route: 048
  4. AUGMENTIN [Concomitant]
     Active Substance: AMOXICILLIN\CLAVULANATE POTASSIUM
     Dosage: UNK, BID
     Route: 048
  5. ZOVIA [Concomitant]
     Active Substance: ETHINYL ESTRADIOL\ETHYNODIOL DIACETATE
  6. CYMBALTA [Suspect]
     Active Substance: DULOXETINE HYDROCHLORIDE
     Indication: ANXIETY
     Dosage: 90 MG, QD
     Route: 048
  7. CYMBALTA [Suspect]
     Active Substance: DULOXETINE HYDROCHLORIDE
     Dosage: 20 MG, QD
     Route: 048
     Dates: start: 20080414
  8. DIFLUCAN [Concomitant]
     Active Substance: FLUCONAZOLE
     Dosage: 150 MG, SINGLE
     Route: 048
  9. ZYRTEC [Concomitant]
     Active Substance: CETIRIZINE HYDROCHLORIDE

REACTIONS (26)
  - Discomfort [Unknown]
  - Feeling abnormal [Recovered/Resolved]
  - Night sweats [Recovered/Resolved]
  - Drug withdrawal syndrome [Recovered/Resolved]
  - Loss of libido [Unknown]
  - Fatigue [Unknown]
  - Paraesthesia [Recovered/Resolved]
  - Night sweats [Recovered/Resolved]
  - Insomnia [Recovered/Resolved]
  - Fatigue [Unknown]
  - Irritability [Recovered/Resolved]
  - Agitation [Unknown]
  - Bruxism [Unknown]
  - Insomnia [Recovered/Resolved]
  - Cardiac murmur [Unknown]
  - Acute sinusitis [Unknown]
  - Sinus tachycardia [Unknown]
  - Nausea [Unknown]
  - Libido decreased [Unknown]
  - Pyogenic granuloma [Unknown]
  - Refraction disorder [Unknown]
  - Injury [Unknown]
  - Dyspnoea [Unknown]
  - Suicidal ideation [Recovered/Resolved]
  - Cough [Unknown]
  - Palpitations [Recovered/Resolved]

NARRATIVE: CASE EVENT DATE: 200606
